FAERS Safety Report 9734370 (Version 2)
Quarter: 2013Q4

REPORT INFORMATION
  Report Type: Report from Study
  Country: BD (occurrence: BD)
  Receive Date: 20131206
  Receipt Date: 20131225
  Transmission Date: 20140711
  Serious: Yes (Death)
  Sender: FDA-Public Use
  Company Number: BD-ROCHE-1312463

PATIENT
  Sex: 0

DRUGS (1)
  1. DIAZEPAM [Suspect]
     Indication: PRODUCT USED FOR UNKNOWN INDICATION
     Route: 064

REACTIONS (4)
  - Neonatal asphyxia [Fatal]
  - Sepsis [Fatal]
  - Low birth weight baby [Fatal]
  - Foetal exposure during pregnancy [Unknown]
